FAERS Safety Report 10069404 (Version 2)
Quarter: 2014Q2

REPORT INFORMATION
  Report Type: Spontaneous
  Country: US (occurrence: US)
  Receive Date: 20140410
  Receipt Date: 20140501
  Transmission Date: 20141212
  Serious: Yes (Other)
  Sender: FDA-Public Use
  Company Number: US-PFIZER INC-2014097007

PATIENT
  Age: 74 Year
  Sex: Female

DRUGS (2)
  1. GLUCOTROL XL [Suspect]
     Indication: DIABETES MELLITUS
     Dosage: 2.5 MG, 1X/DAY
     Route: 048
  2. GLIPIZIDE [Suspect]
     Indication: DIABETES MELLITUS
     Dosage: 2.5 MG, DAILY
     Dates: start: 201312, end: 201312

REACTIONS (9)
  - Gastritis bacterial [Unknown]
  - Liver disorder [Unknown]
  - Hepatic steatosis [Unknown]
  - Chromaturia [Unknown]
  - Gallbladder pain [Unknown]
  - Hepatic pain [Unknown]
  - Back pain [Unknown]
  - Malaise [Unknown]
  - Abdominal pain upper [Unknown]
